FAERS Safety Report 11428951 (Version 1)
Quarter: 2015Q3

REPORT INFORMATION
  Report Type: Spontaneous
  Country: US (occurrence: US)
  Receive Date: 20150828
  Receipt Date: 20150828
  Transmission Date: 20151125
  Serious: No
  Sender: FDA-Public Use
  Company Number: US-ROCHE-1212360

PATIENT
  Sex: Male

DRUGS (3)
  1. INCIVEK [Suspect]
     Active Substance: TELAPREVIR
     Indication: HEPATITIS C
     Route: 048
  2. PEGASYS [Suspect]
     Active Substance: PEGINTERFERON ALFA-2A
     Indication: HEPATITIS C
     Route: 058
  3. RIBASPHERE RIBAPAK [Suspect]
     Active Substance: RIBAVIRIN
     Indication: HEPATITIS C
     Route: 048

REACTIONS (9)
  - Decreased interest [Not Recovered/Not Resolved]
  - Asthenia [Unknown]
  - Hypersensitivity [Recovered/Resolved]
  - Rash [Not Recovered/Not Resolved]
  - Haemorrhoids [Unknown]
  - Pruritus generalised [Unknown]
  - Dyspnoea [Not Recovered/Not Resolved]
  - Rhinorrhoea [Recovered/Resolved]
  - Lacrimation increased [Recovered/Resolved]
